FAERS Safety Report 9028016 (Version 1)
Quarter: 2013Q1

REPORT INFORMATION
  Report Type: Spontaneous
  Country: US (occurrence: None)
  Receive Date: 20130104
  Receipt Date: 20130104
  Transmission Date: 20140127
  Serious: Yes (Hospitalization)
  Sender: FDA-Public Use
  Company Number: 54973 AE # 1162

PATIENT
  Age: 5 Month
  Sex: Male

DRUGS (1)
  1. HYLANDS BABY TEETHING TABLETS [Suspect]
     Indication: TEETHING
     Dosage: 2TABS/NEEDED HS 2-5X/WK

REACTIONS (1)
  - Botulism [None]
